FAERS Safety Report 19184450 (Version 1)
Quarter: 2021Q2

REPORT INFORMATION
  Report Type: Spontaneous
  Country: ES (occurrence: ES)
  Receive Date: 20210427
  Receipt Date: 20210427
  Transmission Date: 20210717
  Serious: Yes (Hospitalization)
  Sender: FDA-Public Use
  Company Number: ES-LUPIN PHARMACEUTICALS INC.-2021-05364

PATIENT
  Age: 48 Year
  Sex: Female

DRUGS (8)
  1. CEMIPLIMAB [Concomitant]
     Active Substance: CEMIPLIMAB
     Indication: BASAL CELL CARCINOMA
     Dosage: 350 MILLIGRAM (3 WEEK)
     Route: 042
  2. NITROGLYCERIN. [Suspect]
     Active Substance: NITROGLYCERIN
     Indication: PERIPHERAL ISCHAEMIA
     Dosage: UNK
     Route: 061
  3. AMLODIPINE [Suspect]
     Active Substance: AMLODIPINE BESYLATE
     Indication: PERIPHERAL ISCHAEMIA
     Dosage: 10 MILLIGRAM, BID
     Route: 065
  4. CIPROFLOXACIN. [Suspect]
     Active Substance: CIPROFLOXACIN
     Indication: PERIPHERAL ISCHAEMIA
     Dosage: 500 MILLIGRAM, BID
     Route: 065
  5. CLINDAMYCIN. [Suspect]
     Active Substance: CLINDAMYCIN
     Indication: PERIPHERAL ISCHAEMIA
     Dosage: 300 MILLIGRAM, BID
     Route: 065
  6. NIFEDIPINE. [Suspect]
     Active Substance: NIFEDIPINE
     Indication: PERIPHERAL ISCHAEMIA
     Dosage: 10 MILLIGRAM, TID
     Route: 065
  7. NIFEDIPINE. [Suspect]
     Active Substance: NIFEDIPINE
     Dosage: 10 MILLIGRAM, QD
     Route: 065
  8. ASPIRIN [ACETYLSALICYLIC ACID] [Suspect]
     Active Substance: ASPIRIN
     Indication: PERIPHERAL ISCHAEMIA
     Dosage: 100 MILLIGRAM, QD
     Route: 065

REACTIONS (1)
  - Drug ineffective [Unknown]
